FAERS Safety Report 21393337 (Version 3)
Quarter: 2023Q1

REPORT INFORMATION
  Report Type: Spontaneous
  Country: US (occurrence: US)
  Receive Date: 20220929
  Receipt Date: 20230116
  Transmission Date: 20230418
  Serious: Yes (Hospitalization, Other)
  Sender: FDA-Public Use
  Company Number: US-ALLERGAN-2231664US

PATIENT
  Sex: Female

DRUGS (1)
  1. QULIPTA [Suspect]
     Active Substance: ATOGEPANT
     Indication: Product used for unknown indication
     Dosage: UNK
     Dates: start: 20220512, end: 20230101

REACTIONS (2)
  - Intestinal obstruction [Unknown]
  - Constipation [Recovering/Resolving]

NARRATIVE: CASE EVENT DATE: 20220901
